FAERS Safety Report 11171773 (Version 6)
Quarter: 2016Q2

REPORT INFORMATION
  Report Type: Spontaneous
  Country: FR (occurrence: FR)
  Receive Date: 20150608
  Receipt Date: 20160518
  Transmission Date: 20160815
  Serious: Yes (Other)
  Sender: FDA-Public Use
  Company Number: FR-SA-2015SA077592

PATIENT
  Age: 36 Year
  Sex: Female

DRUGS (4)
  1. LYRICA [Concomitant]
     Active Substance: PREGABALIN
     Indication: MULTIPLE SCLEROSIS
     Route: 048
     Dates: start: 20150224
  2. AUBAGIO [Suspect]
     Active Substance: TERIFLUNOMIDE
     Indication: MULTIPLE SCLEROSIS
     Route: 048
     Dates: start: 20150224, end: 20150520
  3. LEVOCARNIL [Concomitant]
     Active Substance: LEVOCARNITINE
     Indication: MULTIPLE SCLEROSIS
     Dosage: 100 MG/ML ORAL SOLUTION; 1 VIAL IN THE MORNING , NOON AND EVENING
     Route: 048
     Dates: start: 20150224
  4. LYRICA [Concomitant]
     Active Substance: PREGABALIN
     Indication: MULTIPLE SCLEROSIS
     Route: 048

REACTIONS (14)
  - Vomiting [Recovered/Resolved]
  - Asthenia [Not Recovered/Not Resolved]
  - Nausea [Recovered/Resolved]
  - Thrombocytopenia [Recovered/Resolved]
  - Alopecia [Recovered/Resolved]
  - Fatigue [Not Recovered/Not Resolved]
  - Headache [Recovered/Resolved]
  - General physical health deterioration [Recovering/Resolving]
  - Pruritus [Recovered/Resolved]
  - Hypotension [Recovered/Resolved]
  - Weight loss poor [Recovered/Resolved]
  - Monocyte count increased [Not Recovered/Not Resolved]
  - Weight loss poor [Recovered/Resolved]
  - Diarrhoea [Recovering/Resolving]

NARRATIVE: CASE EVENT DATE: 201504
